FAERS Safety Report 4958137-4 (Version None)
Quarter: 2006Q1

REPORT INFORMATION
  Report Type: 
  Country: None (occurrence: None)
  Receive Date: 20060330
  Receipt Date: 20060323
  Transmission Date: 20060701
  Serious: Yes (Death, Hospitalization)
  Sender: FDA-Public Use
  Company Number: US-MERCK-0603USA03963

PATIENT
  Age: 86 Year
  Sex: Female
  Weight: 64 kg

DRUGS (4)
  1. VIOXX [Suspect]
     Indication: ARTHRITIS
     Route: 048
     Dates: start: 20000308, end: 20030306
  2. ASPIRIN [Concomitant]
     Route: 065
  3. TYLENOL (CAPLET) [Concomitant]
     Route: 065
  4. NORVASC [Concomitant]
     Route: 065
     Dates: end: 20030306

REACTIONS (5)
  - ACUTE RESPIRATORY FAILURE [None]
  - CHEST PAIN [None]
  - DEATH [None]
  - ISCHAEMIC STROKE [None]
  - LACUNAR INFARCTION [None]
